FAERS Safety Report 4350688-9 (Version None)
Quarter: 2004Q2

REPORT INFORMATION
  Report Type: 
  Country: None (occurrence: None)
  Receive Date: 20040428
  Receipt Date: 52000415
  Transmission Date: 20050107
  Serious: Yes (Hospitalization)
  Sender: FDA-Public Use
  Company Number: 2004-UK-00370UK

PATIENT
  Age: 76 Year
  Sex: Female

DRUGS (1)
  1. MICARDIS [Suspect]
     Indication: HYPERTENSION
     Dosage: 80 MG (80 MG)
     Dates: start: 20020101

REACTIONS (2)
  - GALLBLADDER PERFORATION [None]
  - PERITONITIS [None]
